FAERS Safety Report 6370691-7 (Version None)
Quarter: 2009Q3

REPORT INFORMATION
  Report Type: 
  Country: None (occurrence: None)
  Receive Date: 20090923
  Receipt Date: 20070913
  Transmission Date: 20100115
  Serious: Yes (Hospitalization, Other)
  Sender: FDA-Public Use
  Company Number: US-ASTRAZENECA-2006UW25496

PATIENT
  Age: 639 Month
  Sex: Female
  Weight: 113.4 kg

DRUGS (12)
  1. SEROQUEL [Suspect]
     Indication: SLEEP DISORDER
     Route: 048
     Dates: start: 20030120
  2. SEROQUEL [Suspect]
     Route: 048
     Dates: start: 20030930, end: 20031201
  3. CYMBALTA [Concomitant]
  4. ADDERALL 10 [Concomitant]
  5. WELLBUTRIN [Concomitant]
  6. DIOVAN [Concomitant]
  7. ATENOLOL [Concomitant]
  8. SYNTHROID [Concomitant]
  9. EFFEXOR [Concomitant]
  10. LASIX [Concomitant]
  11. VIOXX [Concomitant]
  12. ZOCOR [Concomitant]

REACTIONS (2)
  - DIABETES MELLITUS [None]
  - PANCREATITIS ACUTE [None]
